FAERS Safety Report 14472590 (Version 3)
Quarter: 2018Q1

REPORT INFORMATION
  Report Type: Report from Study
  Country: PK (occurrence: PK)
  Receive Date: 20180201
  Receipt Date: 20180223
  Transmission Date: 20180509
  Serious: Yes (Death)
  Sender: FDA-Public Use
  Company Number: PHHY2018PK016135

PATIENT
  Sex: Male
  Weight: 58 kg

DRUGS (1)
  1. AFINITOR [Suspect]
     Active Substance: EVEROLIMUS
     Indication: RENAL CELL CARCINOMA
     Dosage: 10 MG, QD
     Route: 048
     Dates: start: 20170420

REACTIONS (7)
  - Chromaturia [Unknown]
  - Dysuria [Unknown]
  - Haematuria [Fatal]
  - Renal pain [Unknown]
  - Urinary hesitation [Unknown]
  - Micturition disorder [Unknown]
  - Renal failure [Fatal]
